FAERS Safety Report 20682289 (Version 2)
Quarter: 2022Q2

REPORT INFORMATION
  Report Type: Spontaneous
  Country: DE (occurrence: DE)
  Receive Date: 20220407
  Receipt Date: 20220418
  Transmission Date: 20220721
  Serious: Yes (Other)
  Sender: FDA-Public Use
  Company Number: DE-TEVA-2021-DE-1870080

PATIENT
  Age: 46 Year
  Sex: Female

DRUGS (3)
  1. DEXAMETHASONE [Suspect]
     Active Substance: DEXAMETHASONE
     Indication: Haemophagocytic lymphohistiocytosis
     Dosage: 12 MG 3 TIMES A DAY
     Route: 065
     Dates: start: 2016, end: 2016
  2. DEXAMETHASONE [Suspect]
     Active Substance: DEXAMETHASONE
     Dosage: 4 MILLIGRAM DAILY;
     Route: 065
     Dates: start: 2016, end: 2016
  3. DEXAMETHASONE [Suspect]
     Active Substance: DEXAMETHASONE
     Dosage: 10 MILLIGRAM DAILY;
     Route: 065
     Dates: start: 2016

REACTIONS (3)
  - Steroid diabetes [Unknown]
  - Substance-induced psychotic disorder [Unknown]
  - Hypopituitarism [Unknown]

NARRATIVE: CASE EVENT DATE: 20160101
